FAERS Safety Report 18945656 (Version 2)
Quarter: 2022Q1

REPORT INFORMATION
  Report Type: Spontaneous
  Country: US (occurrence: US)
  Receive Date: 20210226
  Receipt Date: 20220225
  Transmission Date: 20220423
  Serious: No
  Sender: FDA-Public Use
  Company Number: US-RECORDATI RARE DISEASES-US-R13005-19-00038

PATIENT
  Age: 67 Year
  Sex: Female

DRUGS (1)
  1. DESOXYN [Suspect]
     Active Substance: METHAMPHETAMINE HYDROCHLORIDE
     Indication: Narcolepsy
     Dosage: 210 TABLETES FOR 30 DAYS
     Route: 048
     Dates: start: 201902

REACTIONS (14)
  - Infection [Unknown]
  - Agitation [Unknown]
  - Withdrawal syndrome [Unknown]
  - Impaired driving ability [Unknown]
  - Social problem [Unknown]
  - Cough [Not Recovered/Not Resolved]
  - Oropharyngeal pain [Not Recovered/Not Resolved]
  - Sleep disorder [Unknown]
  - Malaise [Unknown]
  - Wrist fracture [Not Recovered/Not Resolved]
  - Insurance issue [Unknown]
  - Off label use [Unknown]
  - Therapy interrupted [Unknown]
  - Underdose [Unknown]

NARRATIVE: CASE EVENT DATE: 20210913
